FAERS Safety Report 8190137-6 (Version None)
Quarter: 2012Q1

REPORT INFORMATION
  Report Type: 
  Country: None (occurrence: None)
  Receive Date: 20120307
  Receipt Date: 20120227
  Transmission Date: 20120608
  Serious: Yes (Hospitalization)
  Sender: FDA-Public Use
  Company Number: GB-ROXANE LABORATORIES, INC.-2012-RO-00733RO

PATIENT
  Age: 89 Year
  Sex: Female

DRUGS (4)
  1. TRIMETHOPRIM [Suspect]
     Indication: URINARY TRACT INFECTION
     Dosage: 100 MG
  2. CLARITHROMYCIN [Suspect]
     Indication: RESPIRATORY TRACT INFECTION
  3. FLUOXETINE [Suspect]
     Dosage: 20 MG
  4. RAMIPRIL [Suspect]
     Dosage: 2.5 NR

REACTIONS (2)
  - ATRIAL FIBRILLATION [None]
  - SEROTONIN SYNDROME [None]
